FAERS Safety Report 10754925 (Version 1)
Quarter: 2015Q1

REPORT INFORMATION
  Report Type: Spontaneous
  Country: US (occurrence: None)
  Receive Date: 20150130
  Receipt Date: 20150130
  Transmission Date: 20150721
  Serious: Yes (Hospitalization, Disabling, Other)
  Sender: FDA-Public Use
  Company Number: None

PATIENT
  Age: 43 Year
  Sex: Female

DRUGS (1)
  1. STELARA [Suspect]
     Active Substance: USTEKINUMAB
     Indication: PSORIASIS
     Dosage: 45 MG 6/26, 7/25, 10/17 ABDOMEN
     Dates: start: 20140627, end: 20141017

REACTIONS (1)
  - Lymphoma [None]

NARRATIVE: CASE EVENT DATE: 20150105
